FAERS Safety Report 24972219 (Version 1)
Quarter: 2025Q1

REPORT INFORMATION
  Report Type: Spontaneous
  Country: CN (occurrence: CN)
  Receive Date: 20250214
  Receipt Date: 20250214
  Transmission Date: 20250408
  Serious: Yes (Other)
  Sender: KOWA PHARM
  Company Number: CN-KOWA-25JP000232AA

PATIENT
  Age: 78 Year
  Sex: Female

DRUGS (14)
  1. LIVALO [Suspect]
     Active Substance: PITAVASTATIN CALCIUM
     Indication: Lipids abnormal
     Route: 048
     Dates: start: 20210709, end: 20210731
  2. COLCHICINE [Suspect]
     Active Substance: COLCHICINE
     Indication: Gout
     Dosage: 1 MG, TID
     Route: 065
     Dates: start: 20210712, end: 20210714
  3. COLCHICINE [Suspect]
     Active Substance: COLCHICINE
     Dosage: 1 MG, BID
     Route: 065
     Dates: start: 20210718, end: 20210720
  4. COLCHICINE [Suspect]
     Active Substance: COLCHICINE
     Dosage: 1 MG, TID
     Route: 065
     Dates: start: 20210723, end: 20210725
  5. FUROSEMIDE [Concomitant]
     Active Substance: FUROSEMIDE
     Indication: Product used for unknown indication
     Route: 042
     Dates: start: 20210709
  6. HEPARIN CALCIUM [Concomitant]
     Active Substance: HEPARIN CALCIUM
     Indication: Anticoagulant therapy
     Route: 065
     Dates: start: 20210709
  7. LOSARTAN POTASSIUM [Concomitant]
     Active Substance: LOSARTAN POTASSIUM
     Indication: Cardiac failure
     Route: 048
     Dates: start: 20210709
  8. ISOSORBIDE DINITRATE [Concomitant]
     Active Substance: ISOSORBIDE DINITRATE
     Indication: Vasodilatation
     Route: 048
     Dates: start: 20210709
  9. CLOPIDOGREL [Concomitant]
     Active Substance: CLOPIDOGREL BISULFATE
     Indication: Antiplatelet therapy
     Route: 048
  10. SPIRONOLACTONE [Concomitant]
     Active Substance: SPIRONOLACTONE
     Indication: Polyuria
     Route: 048
  11. FEBUXOSTAT [Concomitant]
     Active Substance: FEBUXOSTAT
     Indication: Product used for unknown indication
     Route: 048
  12. GLICLAZIDE [Concomitant]
     Active Substance: GLICLAZIDE
     Indication: Diabetes mellitus management
     Route: 048
  13. ACARBOSE [Concomitant]
     Active Substance: ACARBOSE
     Indication: Diabetes mellitus management
     Route: 048
  14. CELECOXIB [Concomitant]
     Active Substance: CELECOXIB
     Indication: Gout
     Route: 048

REACTIONS (2)
  - Drug interaction [Recovered/Resolved]
  - Myopathy [Recovered/Resolved]

NARRATIVE: CASE EVENT DATE: 20210701
